FAERS Safety Report 8159511-8 (Version None)
Quarter: 2012Q1

REPORT INFORMATION
  Report Type: 
  Country: None (occurrence: None)
  Receive Date: 20120223
  Receipt Date: 20120213
  Transmission Date: 20120608
  Serious: Yes (Other)
  Sender: FDA-Public Use
  Company Number: GB-JNJFOC-20120200611

PATIENT
  Sex: Male

DRUGS (3)
  1. SIMPONI [Suspect]
     Route: 058
     Dates: start: 20111016
  2. SIMPONI [Suspect]
     Route: 058
  3. SIMPONI [Suspect]
     Indication: RHEUMATOID ARTHRITIS
     Route: 058
     Dates: start: 20111210

REACTIONS (4)
  - INFECTION [None]
  - TENDON RUPTURE [None]
  - SYNOVIAL CYST [None]
  - LIVER FUNCTION TEST ABNORMAL [None]
